FAERS Safety Report 6933210-X (Version None)
Quarter: 2010Q3

REPORT INFORMATION
  Report Type: 
  Country: None (occurrence: None)
  Receive Date: 20100820
  Receipt Date: 20100811
  Transmission Date: 20110219
  Serious: Yes (Hospitalization)
  Sender: FDA-Public Use
  Company Number: SE-TEVA-244665ISR

PATIENT
  Sex: Male

DRUGS (11)
  1. PREDNISOLONE [Suspect]
     Indication: PROSTATE CANCER METASTATIC
     Route: 048
     Dates: start: 20100218
  2. FUROSEMIDE [Concomitant]
     Indication: CARDIAC FAILURE CONGESTIVE
     Route: 048
     Dates: start: 20090401
  3. ACETAMINOPHEN [Concomitant]
     Indication: ARTHRALGIA
     Route: 048
     Dates: start: 19950101
  4. AMILORIDE HYDROCHLORIDE [Concomitant]
     Indication: HYPERTENSION
     Route: 048
     Dates: start: 20090201
  5. LEKOVIT CA [Concomitant]
     Indication: OSTEOPOROSIS
     Route: 048
     Dates: start: 20070111
  6. AMLODIPINE [Concomitant]
     Indication: HYPERTENSION
     Route: 048
     Dates: start: 20100217
  7. LEUPRORELIN [Concomitant]
     Indication: HORMONE THERAPY
     Route: 058
     Dates: start: 20090910
  8. LEUPRORELIN [Concomitant]
     Indication: PROSTATE CANCER
  9. ANACIN [Concomitant]
     Indication: BACK PAIN
     Route: 048
     Dates: start: 20100201
  10. ANACIN [Concomitant]
     Indication: ARTHRALGIA
  11. ABIRATERONE ACETATE/PLACEBO [Suspect]
     Indication: PROSTATE CANCER METASTATIC
     Route: 048
     Dates: start: 20100218

REACTIONS (1)
  - PNEUMONIA [None]
